FAERS Safety Report 6793070-7 (Version None)
Quarter: 2010Q2

REPORT INFORMATION
  Report Type: 
  Country: None (occurrence: None)
  Receive Date: 20100624
  Receipt Date: 20081112
  Transmission Date: 20101027
  Serious: No
  Sender: FDA-Public Use
  Company Number: US-PFIZER INC-2008096457

PATIENT
  Sex: Female
  Weight: 56.7 kg

DRUGS (4)
  1. XALATAN [Suspect]
     Indication: INTRAOCULAR PRESSURE INCREASED
     Dates: start: 20081110, end: 20081112
  2. FLUTICASONE [Concomitant]
     Route: 045
  3. MULTI-VITAMINS [Concomitant]
  4. XANAX [Concomitant]

REACTIONS (2)
  - EYE IRRITATION [None]
  - OCULAR HYPERAEMIA [None]
